FAERS Safety Report 5069495-7 (Version None)
Quarter: 2006Q3

REPORT INFORMATION
  Report Type: 
  Country: None (occurrence: None)
  Receive Date: 20060801
  Receipt Date: 20060801
  Transmission Date: 20061208
  Serious: Yes (Hospitalization)
  Sender: FDA-Public Use
  Company Number: None

PATIENT
  Age: 80 Year
  Sex: Female

DRUGS (1)
  1. WARFARIN SODIUM [Suspect]
     Indication: PULMONARY EMBOLISM
     Dosage: DAILY PO
     Route: 048
     Dates: start: 20060413, end: 20060419

REACTIONS (2)
  - HAEMATOMA [None]
  - HAEMOGLOBIN DECREASED [None]
